FAERS Safety Report 4501039-8 (Version None)
Quarter: 2004Q4

REPORT INFORMATION
  Report Type: 
  Country: None (occurrence: None)
  Receive Date: 20041109
  Receipt Date: 20041021
  Transmission Date: 20050328
  Serious: Yes (Other)
  Sender: FDA-Public Use
  Company Number: USA041081871

PATIENT
  Age: 40 Year
  Sex: Female

DRUGS (5)
  1. CYMBALTA [Suspect]
     Indication: DEPRESSION
     Dosage: 60 MG DAY
     Dates: start: 20040907, end: 20040901
  2. PAXIL [Concomitant]
  3. TOPAMAX [Concomitant]
  4. ATIVAN [Concomitant]
  5. VICODIN [Concomitant]

REACTIONS (5)
  - AGGRESSION [None]
  - INSOMNIA [None]
  - INTENTIONAL SELF-INJURY [None]
  - MEDICATION ERROR [None]
  - SUICIDAL IDEATION [None]
